FAERS Safety Report 10613973 (Version 1)
Quarter: 2014Q4

REPORT INFORMATION
  Report Type: Spontaneous
  Country: SE (occurrence: SE)
  Receive Date: 20141128
  Receipt Date: 20141128
  Transmission Date: 20150529
  Serious: Yes (Life-Threatening)
  Sender: FDA-Public Use
  Company Number: SE-BRISTOL-MYERS SQUIBB COMPANY-21651369

PATIENT
  Age: 36 Year
  Sex: Male

DRUGS (3)
  1. ABILIFY [Suspect]
     Active Substance: ARIPIPRAZOLE
     Dosage: TABLET
     Dates: start: 2008
  2. OLANZAPINE. [Suspect]
     Active Substance: OLANZAPINE
     Dosage: TABLET
     Route: 048
     Dates: start: 2008
  3. LITHIONIT [Suspect]
     Active Substance: LITHIUM SULFATE
     Dosage: STR: 42MG.?DEPOT TABLET
     Route: 048
     Dates: start: 2011

REACTIONS (1)
  - Pulmonary embolism [Not Recovered/Not Resolved]

NARRATIVE: CASE EVENT DATE: 20140617
